FAERS Safety Report 20361666 (Version 1)
Quarter: 2022Q1

REPORT INFORMATION
  Report Type: Spontaneous
  Country: US (occurrence: None)
  Receive Date: 20220120
  Receipt Date: 20220120
  Transmission Date: 20220423
  Serious: Yes (Life-Threatening, Hospitalization)
  Sender: FDA-Public Use
  Company Number: None

PATIENT
  Age: 69 Year
  Sex: Female
  Weight: 60 kg

DRUGS (1)
  1. PRIVIGEN [Suspect]
     Active Substance: HUMAN IMMUNOGLOBULIN G
     Indication: Hypogammaglobulinaemia
     Dosage: OTHER FREQUENCY : MONTHLY;?
     Route: 042
     Dates: start: 20211221, end: 20211221

REACTIONS (10)
  - Infusion related reaction [None]
  - Eye swelling [None]
  - Paraesthesia [None]
  - Lip swelling [None]
  - Pruritus [None]
  - Erythema [None]
  - Recalled product administered [None]
  - Dysphagia [None]
  - Paraesthesia [None]
  - Paraesthesia [None]

NARRATIVE: CASE EVENT DATE: 20211221
